FAERS Safety Report 25193522 (Version 2)
Quarter: 2025Q3

REPORT INFORMATION
  Report Type: Spontaneous
  Country: JP (occurrence: JP)
  Receive Date: 20250414
  Receipt Date: 20250810
  Transmission Date: 20251020
  Serious: Yes (Other)
  Sender: ALEXION PHARMACEUTICALS
  Company Number: JP-ASTRAZENECA-250034265_063010_P_1

PATIENT
  Age: 6 Decade
  Sex: Female

DRUGS (1)
  1. DAPAGLIFLOZIN [Suspect]
     Active Substance: DAPAGLIFLOZIN
     Indication: Chronic kidney disease

REACTIONS (3)
  - Chronic kidney disease [Unknown]
  - Osteoporosis [Unknown]
  - Underweight [Unknown]
